FAERS Safety Report 7388633-4 (Version None)
Quarter: 2011Q1

REPORT INFORMATION
  Report Type: 
  Country: None (occurrence: None)
  Receive Date: 20110329
  Receipt Date: 20110324
  Transmission Date: 20110831
  Serious: Yes (Death)
  Sender: FDA-Public Use
  Company Number: PHFR2011GB01515

PATIENT
  Sex: Male

DRUGS (5)
  1. SULPIRIDE [Concomitant]
     Dosage: 200 MG, QID
  2. CLOZARIL [Suspect]
     Indication: SCHIZOPHRENIA
     Dosage: UNK MG, UNK
     Route: 065
     Dates: start: 19950213
  3. CLOZARIL [Suspect]
     Dosage: 400 MG, UNK
     Route: 048
  4. CITALOPRAM HYDROBROMIDE [Concomitant]
     Dosage: 40 MG, QD
  5. PROCYCLIDINE HYDROCHLORIDE 2MG TAB [Concomitant]
     Dosage: 5 MG, BID

REACTIONS (10)
  - WHITE BLOOD CELL COUNT INCREASED [None]
  - HAEMATOCRIT DECREASED [None]
  - RED CELL DISTRIBUTION WIDTH INCREASED [None]
  - MEAN CELL VOLUME ABNORMAL [None]
  - BLOOD GLUCOSE INCREASED [None]
  - MEAN CELL HAEMOGLOBIN DECREASED [None]
  - MONOCYTE COUNT INCREASED [None]
  - DEATH [None]
  - BLOOD ALBUMIN DECREASED [None]
  - NEUTROPHIL COUNT INCREASED [None]
